FAERS Safety Report 14496441 (Version 1)
Quarter: 2018Q1

REPORT INFORMATION
  Report Type: Spontaneous
  Country: GB (occurrence: GB)
  Receive Date: 20180207
  Receipt Date: 20180207
  Transmission Date: 20180509
  Serious: Yes (Other)
  Sender: FDA-Public Use
  Company Number: GB-AUROBINDO-AUR-APL-2018-005077

PATIENT
  Age: 63 Year
  Sex: Female
  Weight: 73.2 kg

DRUGS (4)
  1. THYROXINE [Concomitant]
     Active Substance: LEVOTHYROXINE
     Indication: PRODUCT USED FOR UNKNOWN INDICATION
  2. WARFARIN [Concomitant]
     Active Substance: WARFARIN
     Indication: PRODUCT USED FOR UNKNOWN INDICATION
  3. LOSARTAN. [Suspect]
     Active Substance: LOSARTAN
     Indication: TRANSIENT ISCHAEMIC ATTACK
     Dosage: INITIALLY I TOOK 50 THEN 100. CUT DOWN TO 50 (25 IN THE MORNING 25 AT NIGHT) ()
     Route: 048
     Dates: start: 20160110, end: 2018
  4. PULMICORT TURBUHALER [Concomitant]
     Active Substance: BUDESONIDE
     Indication: PRODUCT USED FOR UNKNOWN INDICATION

REACTIONS (5)
  - Rash pruritic [Recovering/Resolving]
  - Cough [Recovering/Resolving]
  - Asthma [Unknown]
  - Blood pressure increased [Unknown]
  - Pain in extremity [Unknown]

NARRATIVE: CASE EVENT DATE: 20170305
